FAERS Safety Report 16016841 (Version 8)
Quarter: 2019Q3

REPORT INFORMATION
  Report Type: Spontaneous
  Country: US (occurrence: US)
  Receive Date: 20190228
  Receipt Date: 20190826
  Transmission Date: 20191004
  Serious: No
  Sender: FDA-Public Use
  Company Number: US-PFIZER INC-2019082575

PATIENT
  Age: 52 Year
  Sex: Female

DRUGS (2)
  1. LYRICA [Suspect]
     Active Substance: PREGABALIN
     Dosage: 250 MG, DAILY (LYRICA 50 MG, FIVE PILLS A DAY)
  2. LYRICA [Suspect]
     Active Substance: PREGABALIN
     Dosage: 50 MG, 5 TIMES PER DAY

REACTIONS (6)
  - Cough [Unknown]
  - Off label use [Unknown]
  - Insomnia [Unknown]
  - Feeling abnormal [Unknown]
  - Speech disorder [Unknown]
  - Aphonia [Unknown]
